FAERS Safety Report 5471451-1 (Version None)
Quarter: 2007Q3

REPORT INFORMATION
  Report Type: 
  Country: None (occurrence: None)
  Receive Date: 20070928
  Receipt Date: 20061024
  Transmission Date: 20080115
  Serious: No
  Sender: FDA-Public Use
  Company Number: US-BRISTOL-MYERS SQUIBB COMPANY-13554803

PATIENT
  Sex: Female
  Weight: 58 kg

DRUGS (1)
  1. DEFINITY [Suspect]
     Dates: start: 20061024, end: 20061024

REACTIONS (3)
  - CHEST PAIN [None]
  - DYSPNOEA [None]
  - HEADACHE [None]
